FAERS Safety Report 11089866 (Version 2)
Quarter: 2015Q2

REPORT INFORMATION
  Report Type: Spontaneous
  Country: FR (occurrence: None)
  Receive Date: 20150501
  Receipt Date: 20150511
  Transmission Date: 20150821
  Serious: Yes (Death, Hospitalization)
  Sender: FDA-Public Use
  Company Number: KAD201504-000989

PATIENT
  Age: 76 Year
  Sex: Female

DRUGS (9)
  1. RIBAVIRIN (RIBAVIRIN) [Suspect]
     Active Substance: RIBAVIRIN
     Indication: CHRONIC HEPATITIS C
     Route: 048
     Dates: start: 201503, end: 20150407
  2. COZAAR (LOSARTAN POTASSIUM) [Concomitant]
  3. EXVIERA (DASABUVIR) [Suspect]
     Active Substance: DASABUVIR
     Indication: CHRONIC HEPATITIS C
     Route: 048
     Dates: start: 201503, end: 20150407
  4. BEDELIX (MONTMORILLONITE) [Concomitant]
  5. CALCIDOSE (CALCIUM CARBONATE) [Concomitant]
  6. DEBRIDAT (TRIMEBUTINE) [Concomitant]
  7. DIOSMINE [Concomitant]
     Active Substance: HESPERIDIN
  8. VIEKIRAX [Suspect]
     Active Substance: OMBITASVIR\PARITAPREVIR\RITONAVIR
     Indication: CHRONIC HEPATITIS C
     Route: 048
     Dates: start: 201503, end: 20150407
  9. METEOSPASMYL (ALVERINE CITRATE, SIMETHICONE) (ALVERINE CITRATE, SIMETHICONE) [Concomitant]

REACTIONS (9)
  - Acute hepatic failure [None]
  - General physical health deterioration [None]
  - Pulmonary oedema [None]
  - Hepatic encephalopathy [None]
  - Cholestasis [None]
  - Circadian rhythm sleep disorder [None]
  - Septic shock [None]
  - Pain [None]
  - Acute kidney injury [None]

NARRATIVE: CASE EVENT DATE: 201504
